FAERS Safety Report 5534138-2 (Version None)
Quarter: 2007Q4

REPORT INFORMATION
  Report Type: 
  Country: None (occurrence: None)
  Receive Date: 20071205
  Receipt Date: 20071203
  Transmission Date: 20080405
  Serious: Yes (Life-Threatening, Hospitalization)
  Sender: FDA-Public Use
  Company Number: FR-BRISTOL-MYERS SQUIBB COMPANY-14002166

PATIENT
  Age: 26 Year
  Sex: Female

DRUGS (2)
  1. CORGARD [Suspect]
     Indication: TACHYCARDIA
     Dosage: THERAPY DURATION : 4 WEEKS 6 DAYS-TIME TO ONSET: 2 MONTHS
     Route: 048
     Dates: start: 20060801, end: 20060901
  2. CARDIOCALM [Suspect]
     Indication: TACHYCARDIA
     Dosage: THERAPY DURATION : 6 WEEKS -TIME TO ONSET: 6 WEEKS
     Route: 048
     Dates: start: 20060901, end: 20061001

REACTIONS (2)
  - INTRA-UTERINE DEATH [None]
  - PREGNANCY [None]
